FAERS Safety Report 7722534-4 (Version None)
Quarter: 2011Q3

REPORT INFORMATION
  Report Type: 
  Country: None (occurrence: None)
  Receive Date: 20110831
  Receipt Date: 20110822
  Transmission Date: 20111222
  Serious: Yes (Hospitalization)
  Sender: FDA-Public Use
  Company Number: PHEH2011US02222

PATIENT
  Sex: Female

DRUGS (1)
  1. MYFORTIC [Suspect]
     Indication: COMPLICATIONS OF TRANSPLANTED LIVER
     Dosage: 720 MG, BID
     Route: 048

REACTIONS (1)
  - TRANSFUSION RELATED COMPLICATION [None]
